FAERS Safety Report 10084259 (Version 1)
Quarter: 2014Q2

REPORT INFORMATION
  Report Type: Spontaneous
  Country: BR (occurrence: BR)
  Receive Date: 20140417
  Receipt Date: 20140417
  Transmission Date: 20141212
  Serious: Yes (Hospitalization)
  Sender: FDA-Public Use
  Company Number: BR-ASTRAZENECA-2014SE25239

PATIENT
  Age: 75 Year
  Sex: Male

DRUGS (7)
  1. SELOZOK [Suspect]
     Indication: MYOCARDIAL INFARCTION
     Route: 048
     Dates: start: 201403, end: 201403
  2. SELOZOK [Suspect]
     Indication: MYOCARDIAL INFARCTION
     Route: 048
     Dates: start: 201403
  3. MONOCORDIL [Concomitant]
     Indication: MYOCARDIAL INFARCTION
     Route: 048
     Dates: start: 201403
  4. ENALAPRIL MALEATE [Concomitant]
     Indication: MYOCARDIAL INFARCTION
     Route: 048
     Dates: start: 201403
  5. SIMVASTATIN [Concomitant]
     Indication: MYOCARDIAL INFARCTION
     Route: 048
     Dates: start: 201403
  6. FUROSEMIDE [Concomitant]
     Indication: MYOCARDIAL INFARCTION
     Route: 048
     Dates: start: 201403
  7. AAS INFANTIL [Concomitant]
     Indication: MYOCARDIAL INFARCTION
     Route: 048
     Dates: start: 201403

REACTIONS (2)
  - Coronary artery disease [Recovered/Resolved]
  - Off label use [Not Recovered/Not Resolved]
